FAERS Safety Report 21059480 (Version 1)
Quarter: 2022Q3

REPORT INFORMATION
  Report Type: Spontaneous
  Country: US (occurrence: None)
  Receive Date: 20220708
  Receipt Date: 20220708
  Transmission Date: 20221026
  Serious: Yes (Hospitalization)
  Sender: FDA-Public Use
  Company Number: None

PATIENT
  Age: 36 Year
  Sex: Female

DRUGS (19)
  1. DEFERASIROX [Suspect]
     Active Substance: DEFERASIROX
     Indication: Haemochromatosis
     Dosage: FREQUENCY : DAILY;?
     Route: 048
  2. ALBUTEROL [Concomitant]
  3. ASPIRIN [Concomitant]
     Active Substance: ASPIRIN
  4. CETIRIZINE [Concomitant]
  5. CYMBALTA [Concomitant]
  6. DIPHENHYDRAMINE [Concomitant]
  7. ELIQUIS [Concomitant]
  8. FLUTICASONE [Concomitant]
  9. FOLIC ACID [Concomitant]
  10. HYDROXYUREA [Concomitant]
  11. FOLIC ACID [Concomitant]
  12. HYDROXYUREA [Concomitant]
  13. LIPITOR [Concomitant]
  14. MIRTAZAPINE [Concomitant]
  15. MORPHINE [Concomitant]
  16. NALOXONE [Concomitant]
  17. OLANZAPINE [Concomitant]
  18. PROMETHAZINE [Concomitant]
  19. TRAZODONE [Concomitant]

REACTIONS (1)
  - Anaemia [None]

NARRATIVE: CASE EVENT DATE: 20220522
